FAERS Safety Report 7717596-4 (Version None)
Quarter: 2011Q3

REPORT INFORMATION
  Report Type: 
  Country: None (occurrence: None)
  Receive Date: 20110817
  Receipt Date: 20101116
  Transmission Date: 20111222
  Serious: Yes (Other)
  Sender: FDA-Public Use
  Company Number: 20109073

PATIENT
  Sex: Female

DRUGS (4)
  1. LIORESAL [Suspect]
     Indication: MUSCLE SPASTICITY
     Dosage: 2.998 MCG, DAILY, INTRATHECAL
     Route: 037
  2. DROPERIDOL [Concomitant]
  3. MORPHINE [Concomitant]
  4. BUPIVACAINE HCL [Concomitant]

REACTIONS (4)
  - DRUG WITHDRAWAL SYNDROME [None]
  - DIARRHOEA [None]
  - NAUSEA [None]
  - VOMITING [None]
